FAERS Safety Report 6698769-9 (Version None)
Quarter: 2010Q2

REPORT INFORMATION
  Report Type: 
  Country: None (occurrence: None)
  Receive Date: 20100427
  Receipt Date: 20100416
  Transmission Date: 20101027
  Serious: Yes (Other)
  Sender: FDA-Public Use
  Company Number: PHHY2010US25597

PATIENT

DRUGS (1)
  1. RECLAST [Suspect]
     Dosage: 5 MG YEARLY
     Route: 042

REACTIONS (4)
  - EYE MUSCLE ENTRAPMENT [None]
  - INFLUENZA LIKE ILLNESS [None]
  - MYALGIA [None]
  - VISION BLURRED [None]
